FAERS Safety Report 13725143 (Version 1)
Quarter: 2017Q3

REPORT INFORMATION
  Report Type: Spontaneous
  Country: US (occurrence: US)
  Receive Date: 20170706
  Receipt Date: 20170706
  Transmission Date: 20171127
  Serious: Yes (Life-Threatening)
  Sender: FDA-Public Use
  Company Number: None

PATIENT
  Age: 52 Year
  Sex: Male
  Weight: 71.2 kg

DRUGS (3)
  1. IBRUTINIB [Suspect]
     Active Substance: IBRUTINIB
     Indication: MANTLE CELL LYMPHOMA
     Route: 048
     Dates: start: 20161021
  2. LENALIDOMIDE [Suspect]
     Active Substance: LENALIDOMIDE
     Indication: MANTLE CELL LYMPHOMA
     Dosage: 15MG DAYS 1-21 ORAL
     Route: 048
     Dates: start: 20161021
  3. RITUXAN [Concomitant]
     Active Substance: RITUXIMAB

REACTIONS (3)
  - Cardiac arrest [None]
  - Dysarthria [None]
  - Fall [None]

NARRATIVE: CASE EVENT DATE: 20170706
